FAERS Safety Report 16526932 (Version 4)
Quarter: 2020Q2

REPORT INFORMATION
  Report Type: Spontaneous
  Country: PT (occurrence: PT)
  Receive Date: 20190703
  Receipt Date: 20200630
  Transmission Date: 20200713
  Serious: Yes (Life-Threatening, Hospitalization, Other)
  Sender: FDA-Public Use
  Company Number: PT-MYLANLABS-2019M1061708

PATIENT
  Age: 67 Year
  Sex: Female

DRUGS (15)
  1. MIRTAZAPINE. [Suspect]
     Active Substance: MIRTAZAPINE
     Indication: PRODUCT USED FOR UNKNOWN INDICATION
     Dosage: UNK,UNKNOWN
     Route: 065
  2. SIMVASTATIN. [Suspect]
     Active Substance: SIMVASTATIN
     Indication: PRODUCT USED FOR UNKNOWN INDICATION
     Dosage: UNK
     Route: 065
  3. VALPROIC ACID. [Suspect]
     Active Substance: VALPROIC ACID
     Dosage: 400 MILLIGRAM, QD
     Route: 048
  4. HALOPERIDOL DECANOATE. [Suspect]
     Active Substance: HALOPERIDOL DECANOATE
     Indication: SCHIZOPHRENIA
     Dosage: 2 DOSAGE FORM, QW,HALOPERIDOL DECANOATE 2/ WEEKS
     Route: 065
  5. HALOPERIDOL. [Suspect]
     Active Substance: HALOPERIDOL
     Dosage: 10 MILLIGRAM, QD
     Route: 048
  6. BIPERIDEN [Suspect]
     Active Substance: BIPERIDEN
     Indication: PRODUCT USED FOR UNKNOWN INDICATION
     Dosage: UNK
     Route: 065
  7. VALPROIC ACID. [Suspect]
     Active Substance: VALPROIC ACID
     Indication: PRODUCT USED FOR UNKNOWN INDICATION
     Dosage: 200 MILLIGRAM, QD DOSAGE FORM: UNSPECIFIED
     Route: 048
  8. HALOPERIDOL. [Suspect]
     Active Substance: HALOPERIDOL
     Dosage: (5 MILLIGRAM, QD) DOSAGE FORM: UNSPECIFIED
     Route: 048
  9. MIRTAZAPINE. [Suspect]
     Active Substance: MIRTAZAPINE
     Dosage: 15 MILLIGRAM, QD (DOSAGE FORM: UNSPECIFIED)
     Route: 048
  10. HALOPERIDOL. [Suspect]
     Active Substance: HALOPERIDOL
     Dosage: 15 MILLIGRAM, QD
     Route: 048
  11. HALOPERIDOL. [Suspect]
     Active Substance: HALOPERIDOL
     Dosage: (5 MILLIGRAM, QD) DOSAGE FORM: UNSPECIFIED
     Route: 048
  12. HALOPERIDOL DECANOATE. [Suspect]
     Active Substance: HALOPERIDOL DECANOATE
     Dosage: 100 MILLIGRAM, 4 WEEKS (DOSAGE FORM: UNSPECIFIED)
     Route: 030
  13. SIMVASTATIN. [Suspect]
     Active Substance: SIMVASTATIN
     Dosage: 20 MILLIGRAM, QD (DOSAGE FORM: UNSPECIFIED)
     Route: 048
  14. HALOPERIDOL. [Suspect]
     Active Substance: HALOPERIDOL
     Indication: SCHIZOPHRENIA
     Dosage: UNK
     Route: 065
  15. HALOPERIDOL DECANOATE. [Suspect]
     Active Substance: HALOPERIDOL DECANOATE
     Indication: SCHIZOPHRENIA
     Dosage: 100 MILLIGRAM, Q2W (DOSAGE FORM: UNSPECIFIED)
     Route: 030

REACTIONS (4)
  - Coma [Unknown]
  - Hypoglycaemia [Recovered/Resolved]
  - Sinus bradycardia [Unknown]
  - Hypothermia [Unknown]
